FAERS Safety Report 4332608-6 (Version None)
Quarter: 2004Q1

REPORT INFORMATION
  Report Type: 
  Country: None (occurrence: None)
  Receive Date: 20040330
  Receipt Date: 20021113
  Transmission Date: 20041129
  Serious: Yes (Hospitalization)
  Sender: FDA-Public Use
  Company Number: 2002IC000325

PATIENT
  Age: 60 Year
  Sex: Female

DRUGS (3)
  1. FLUOROURACIL [Suspect]
     Indication: COLON CANCER
     Dosage: SEE IMAGE
     Route: 042
     Dates: start: 20020306, end: 20020320
  2. FLUOROURACIL [Suspect]
     Indication: COLON CANCER
     Dosage: SEE IMAGE
     Route: 042
     Dates: start: 20020327, end: 20020327
  3. ISOVORIN [Suspect]
     Indication: COLON CANCER
     Dosage: 300 MG;DAILY;INTRAVENOUS
     Route: 042
     Dates: start: 20020306, end: 20020327

REACTIONS (7)
  - C-REACTIVE PROTEIN INCREASED [None]
  - HYPOKALAEMIA [None]
  - HYPONATRAEMIA [None]
  - PIGMENTATION DISORDER [None]
  - POST PROCEDURAL DIARRHOEA [None]
  - POST PROCEDURAL NAUSEA [None]
  - STOMATITIS [None]
